FAERS Safety Report 6099399-2 (Version None)
Quarter: 2009Q1

REPORT INFORMATION
  Report Type: 
  Country: None (occurrence: None)
  Receive Date: 20090226
  Receipt Date: 20090226
  Transmission Date: 20090719
  Serious: Yes (Hospitalization)
  Sender: FDA-Public Use
  Company Number: None

PATIENT
  Age: 58 Year
  Sex: Male
  Weight: 135 kg

DRUGS (1)
  1. HEPARIN [Suspect]
     Dosage: 500 UNITS TID SQ
     Dates: start: 20080112, end: 20090215

REACTIONS (1)
  - THROMBOCYTOPENIA [None]
